FAERS Safety Report 10406616 (Version 2)
Quarter: 2014Q3

REPORT INFORMATION
  Report Type: Spontaneous
  Country: US (occurrence: US)
  Receive Date: 20140825
  Receipt Date: 20140825
  Transmission Date: 20150326
  Serious: Yes (Hospitalization, Other)
  Sender: FDA-Public Use
  Company Number: US-009507513-2007-168983-NL

PATIENT
  Sex: Female
  Weight: 113 kg

DRUGS (4)
  1. NUVARING [Suspect]
     Active Substance: ETHINYL ESTRADIOL\ETONOGESTREL
     Indication: CONTRACEPTION
     Dosage: CONTINUING: NO
     Dates: start: 200509, end: 200512
  2. NUVARING [Suspect]
     Active Substance: ETHINYL ESTRADIOL\ETONOGESTREL
     Indication: DYSMENORRHOEA
     Dosage: UNK
     Route: 067
     Dates: start: 20080129
  3. NUVARING [Suspect]
     Active Substance: ETHINYL ESTRADIOL\ETONOGESTREL
     Indication: HORMONE LEVEL ABNORMAL
     Dosage: CONTINUING: NO
     Dates: start: 200701, end: 200706
  4. PHENTERMINE [Concomitant]
     Active Substance: PHENTERMINE
     Indication: WEIGHT DECREASED
     Dosage: 37.5 MG, QD
     Dates: start: 20070118, end: 20070613

REACTIONS (12)
  - Leukocytosis [Unknown]
  - Presyncope [Recovered/Resolved]
  - Abdominal discomfort [Recovered/Resolved]
  - Off label use [Unknown]
  - Hyperlipidaemia [Unknown]
  - Cough [Unknown]
  - Diabetes mellitus [Unknown]
  - Pneumonia [Unknown]
  - Uterine polyp [Unknown]
  - Hyperglycaemia [Unknown]
  - Menorrhagia [Unknown]
  - Pulmonary embolism [Unknown]

NARRATIVE: CASE EVENT DATE: 200603
